FAERS Safety Report 21082735 (Version 3)
Quarter: 2022Q4

REPORT INFORMATION
  Report Type: Spontaneous
  Country: BR (occurrence: BR)
  Receive Date: 20220714
  Receipt Date: 20221108
  Transmission Date: 20230113
  Serious: Yes (Other)
  Sender: FDA-Public Use
  Company Number: BR-NOVARTISPH-NVSC2022BR159741

PATIENT
  Sex: Male
  Weight: 30 kg

DRUGS (2)
  1. TEGRETOL [Suspect]
     Active Substance: CARBAMAZEPINE
     Indication: Epilepsy
     Dosage: 400 MG
     Route: 065
  2. TEGRETOL [Suspect]
     Active Substance: CARBAMAZEPINE
     Dosage: 400 MG, TID (CONTINUOUS USED 1 AND ? TABLET)
     Route: 048
     Dates: start: 2010, end: 202205

REACTIONS (5)
  - Hyperhidrosis [Unknown]
  - Salivary hypersecretion [Unknown]
  - Epilepsy [Unknown]
  - Sleep disorder [Unknown]
  - Product availability issue [Unknown]
